FAERS Safety Report 9304666 (Version 3)
Quarter: 2013Q3

REPORT INFORMATION
  Report Type: Spontaneous
  Country: US (occurrence: US)
  Receive Date: 20130523
  Receipt Date: 20130812
  Transmission Date: 20140515
  Serious: Yes (Other)
  Sender: FDA-Public Use
  Company Number: US-BIOGENIDEC-2013BI044919

PATIENT
  Sex: Male

DRUGS (3)
  1. TYSABRI [Suspect]
     Indication: MULTIPLE SCLEROSIS
     Route: 042
     Dates: start: 20101201
  2. TYSABRI [Suspect]
     Indication: MULTIPLE SCLEROSIS
     Route: 042
     Dates: start: 20101202, end: 20130307
  3. AVONEX [Concomitant]
     Indication: MULTIPLE SCLEROSIS
     Route: 030

REACTIONS (1)
  - Anaemia [Not Recovered/Not Resolved]
